FAERS Safety Report 11521604 (Version 1)
Quarter: 2015Q3

REPORT INFORMATION
  Report Type: Spontaneous
  Country: US (occurrence: US)
  Receive Date: 20150918
  Receipt Date: 20150918
  Transmission Date: 20151125
  Serious: No
  Sender: FDA-Public Use
  Company Number: US-TEVA-507698USA

PATIENT
  Sex: Female

DRUGS (1)
  1. LEVETIRACETAM. [Suspect]
     Active Substance: LEVETIRACETAM
     Route: 048

REACTIONS (4)
  - Blister [Unknown]
  - Medication residue present [Unknown]
  - Skin exfoliation [Unknown]
  - Salivary hypersecretion [Unknown]
